FAERS Safety Report 7368315-5 (Version None)
Quarter: 2011Q1

REPORT INFORMATION
  Report Type: 
  Country: None (occurrence: None)
  Receive Date: 20110323
  Receipt Date: 20110315
  Transmission Date: 20110831
  Serious: No
  Sender: FDA-Public Use
  Company Number: US-PFIZER INC-2011058277

PATIENT

DRUGS (3)
  1. ADVIL LIQUI-GELS [Suspect]
  2. ADVIL LIQUI-GELS [Concomitant]
  3. ADVIL LIQUI-GELS [Suspect]

REACTIONS (2)
  - DYSPHAGIA [None]
  - FOREIGN BODY [None]
